FAERS Safety Report 19219498 (Version 2)
Quarter: 2021Q3

REPORT INFORMATION
  Report Type: Spontaneous
  Country: US (occurrence: US)
  Receive Date: 20210506
  Receipt Date: 20210728
  Transmission Date: 20211014
  Serious: No
  Sender: FDA-Public Use
  Company Number: US-SA-2021SA146418

PATIENT
  Age: 59 Year
  Sex: Female

DRUGS (1)
  1. DUPIXENT [Suspect]
     Active Substance: DUPILUMAB
     Dosage: 300 MG
     Route: 058
     Dates: start: 202107

REACTIONS (4)
  - Injection site erythema [Recovered/Resolved]
  - Erythema [Recovered/Resolved]
  - Foreign body sensation in eyes [Unknown]
  - Vitreous floaters [Unknown]
